FAERS Safety Report 10721722 (Version 2)
Quarter: 2015Q2

REPORT INFORMATION
  Report Type: Report from Study
  Country: US (occurrence: US)
  Receive Date: 20150119
  Receipt Date: 20150414
  Transmission Date: 20150821
  Serious: Yes (Hospitalization, Other)
  Sender: FDA-Public Use
  Company Number: US-GILEAD-2015-0131815

PATIENT
  Age: 74 Year
  Sex: Male

DRUGS (1)
  1. RANOLAZINE [Suspect]
     Active Substance: RANOLAZINE
     Indication: ANGINA PECTORIS
     Dosage: 1000 MG, UNK
     Route: 048

REACTIONS (8)
  - Unevaluable event [Unknown]
  - Chronic obstructive pulmonary disease [Unknown]
  - Oxygen supplementation [Unknown]
  - Peripheral arterial occlusive disease [Unknown]
  - Carotid artery occlusion [Unknown]
  - Atrial fibrillation [Unknown]
  - Malaise [Not Recovered/Not Resolved]
  - Aortic aneurysm [Unknown]
